FAERS Safety Report 6424105-9 (Version None)
Quarter: 2009Q4

REPORT INFORMATION
  Report Type: 
  Country: None (occurrence: None)
  Receive Date: 20091102
  Receipt Date: 20091021
  Transmission Date: 20100525
  Serious: Yes (Hospitalization)
  Sender: FDA-Public Use
  Company Number: US-AMGEN-US370651

PATIENT
  Sex: Male
  Weight: 103.5 kg

DRUGS (9)
  1. NEULASTA [Suspect]
     Indication: CHEMOTHERAPY
     Route: 065
     Dates: start: 20090813
  2. RITUXAN [Suspect]
     Route: 042
     Dates: start: 20090811
  3. CYCLOPHOSPHAMIDE [Suspect]
     Route: 042
     Dates: start: 20090812
  4. DOXORUBICIN HCL [Suspect]
     Route: 042
     Dates: start: 20090812
  5. VINCRISTINE [Suspect]
     Route: 042
     Dates: start: 20090812
  6. PREDNISONE [Suspect]
     Route: 048
     Dates: start: 20090812, end: 20090816
  7. PERCOCET [Concomitant]
     Route: 065
  8. MOTRIN [Concomitant]
     Route: 065
  9. FLEXERIL [Concomitant]
     Route: 065

REACTIONS (2)
  - FEBRILE NEUTROPENIA [None]
  - TACHYCARDIA [None]
